FAERS Safety Report 8134251-X (Version None)
Quarter: 2012Q1

REPORT INFORMATION
  Report Type: 
  Country: None (occurrence: None)
  Receive Date: 20120201
  Receipt Date: 20120119
  Transmission Date: 20120608
  Serious: Yes (Other)
  Sender: FDA-Public Use
  Company Number: 2011PROUSA00690

PATIENT
  Age: 64 Year
  Sex: Male
  Weight: 83.4 kg

DRUGS (9)
  1. PROCHLORPERAZINE MALEATE (PROCHLORPERAZINE MALEATE) TABLET, 10 MG [Concomitant]
  2. ZOFRAN /00955301/ (ONDANSETRON) TABLET, 8 MG [Concomitant]
  3. LORAZEPAM [Concomitant]
  4. PROVENGE [Suspect]
     Indication: PROSTATE CANCER METASTATIC
     Dosage: 250 ML, SINGLE, INTRAVENOUS
     Route: 042
     Dates: start: 20110923, end: 20110923
  5. PROVENGE [Suspect]
     Indication: PROSTATE CANCER METASTATIC
     Dosage: 250 ML, SINGLE, INTRAVENOUS
     Route: 042
     Dates: start: 20110909, end: 20110909
  6. PROVENGE [Suspect]
  7. VICODIN [Concomitant]
  8. IBUPROFEN (IBUPROFEN) TABLET, 200 MG [Concomitant]
  9. SIMVASTATIN [Concomitant]

REACTIONS (9)
  - ASCITES [None]
  - PLEURAL EFFUSION [None]
  - FATIGUE [None]
  - ANAEMIA [None]
  - NAUSEA [None]
  - WEIGHT DECREASED [None]
  - DISEASE PROGRESSION [None]
  - ASTHENIA [None]
  - HYPOTENSION [None]
